FAERS Safety Report 6054777-2 (Version None)
Quarter: 2009Q1

REPORT INFORMATION
  Report Type: 
  Country: None (occurrence: None)
  Receive Date: 20090128
  Receipt Date: 20090120
  Transmission Date: 20090719
  Serious: Yes (Death, Other)
  Sender: FDA-Public Use
  Company Number: US-PFIZER INC-2005060701

PATIENT
  Sex: Male
  Weight: 82.55 kg

DRUGS (3)
  1. CELEBREX [Suspect]
     Indication: ARTHRITIS
     Dosage: 200 MG, 3X/DAY
     Dates: start: 20010101, end: 20040407
  2. CELEBREX [Suspect]
     Indication: PAIN
  3. ASPIRIN [Concomitant]
     Route: 065
     Dates: start: 19810101

REACTIONS (2)
  - CEREBROVASCULAR ACCIDENT [None]
  - MYOCARDIAL INFARCTION [None]
